FAERS Safety Report 7883738-3 (Version None)
Quarter: 2011Q4

REPORT INFORMATION
  Report Type: 
  Country: None (occurrence: None)
  Receive Date: 20111031
  Receipt Date: 20111018
  Transmission Date: 20120403
  Serious: No
  Sender: FDA-Public Use
  Company Number: 2011P1009615

PATIENT
  Age: 4 Year
  Sex: Male

DRUGS (6)
  1. PEGYLATED [Concomitant]
  2. METHOTREXATE [Concomitant]
  3. ASPARAGINASE [Concomitant]
  4. DEXAMETHASONE [Suspect]
     Indication: B-CELL TYPE ACUTE LEUKAEMIA
     Dosage: PER PROTOCOL
  5. DAUNORUBICIN HCL [Concomitant]
  6. VINCRISTINE [Concomitant]

REACTIONS (6)
  - MUCOSAL INFLAMMATION [None]
  - WEIGHT DECREASED [None]
  - OESOPHAGEAL CANDIDIASIS [None]
  - ORAL CANDIDIASIS [None]
  - CHEST PAIN [None]
  - VOMITING [None]
